FAERS Safety Report 18981827 (Version 3)
Quarter: 2021Q2

REPORT INFORMATION
  Report Type: Report from Study
  Country: US (occurrence: US)
  Receive Date: 20210308
  Receipt Date: 20210524
  Transmission Date: 20210717
  Serious: Yes (Other)
  Sender: FDA-Public Use
  Company Number: NVSC2021US043430

PATIENT
  Sex: Male

DRUGS (1)
  1. TABRECTA [Suspect]
     Active Substance: CAPMATINIB
     Indication: PRODUCT USED FOR UNKNOWN INDICATION
     Dosage: UNK
     Route: 048

REACTIONS (5)
  - Pulmonary congestion [Unknown]
  - Haemoptysis [Unknown]
  - Joint swelling [Recovered/Resolved]
  - Tumour compression [Unknown]
  - Product storage error [Unknown]
